FAERS Safety Report 10253334 (Version 1)
Quarter: 2014Q2

REPORT INFORMATION
  Report Type: Spontaneous
  Country: US (occurrence: US)
  Receive Date: 20140623
  Receipt Date: 20140623
  Transmission Date: 20141212
  Serious: No
  Sender: FDA-Public Use
  Company Number: US-SHIONOGI, INC-2014000363

PATIENT
  Age: 62 Year
  Sex: Female

DRUGS (3)
  1. OSPHENA [Suspect]
     Indication: VULVOVAGINAL PAIN
     Dosage: 60 MG, QD
     Route: 065
     Dates: start: 201311
  2. OSPHENA [Suspect]
     Indication: OFF LABEL USE
     Dosage: 60 MG (HALF A TABLET) QD
     Dates: start: 201312
  3. PREMARIN [Concomitant]
     Indication: PRODUCT USED FOR UNKNOWN INDICATION
     Dosage: 1 G, ONCE A WEEK
     Route: 065

REACTIONS (5)
  - Pubic pain [Not Recovered/Not Resolved]
  - Vulvovaginal pain [Not Recovered/Not Resolved]
  - Off label use [Unknown]
  - Medication error [Unknown]
  - Labelled drug-drug interaction medication error [Unknown]
